FAERS Safety Report 11148425 (Version 1)
Quarter: 2015Q2

REPORT INFORMATION
  Report Type: Spontaneous
  Country: JP (occurrence: JP)
  Receive Date: 20150529
  Receipt Date: 20150529
  Transmission Date: 20150821
  Serious: Yes (Death)
  Sender: FDA-Public Use
  Company Number: JP-HORIZON-BUP-0001-2015

PATIENT
  Age: 1 Week
  Sex: Female
  Weight: 1 kg

DRUGS (7)
  1. NEUQUINON [Concomitant]
     Active Substance: UBIDECARENONE
     Indication: PROPHYLAXIS
     Route: 048
     Dates: start: 20140602, end: 20140605
  2. ARGININE [Concomitant]
     Active Substance: ARGININE
     Indication: MITOCHONDRIAL CYTOPATHY
     Route: 042
     Dates: start: 20140530, end: 20140604
  3. LEVOCARNITINE. [Concomitant]
     Active Substance: LEVOCARNITINE
     Indication: PROPHYLAXIS
     Route: 042
     Dates: start: 20140604, end: 20140605
  4. SODIUM BENZOATE [Concomitant]
     Active Substance: SODIUM BENZOATE
     Indication: MITOCHONDRIAL CYTOPATHY
     Route: 042
     Dates: start: 20140530, end: 20140604
  5. VITAMEDIN [Concomitant]
     Active Substance: CYANOCOBALAMIN\PYRIDOXINE HYDROCHLORIDE\THIAMINE
     Indication: PROPHYLAXIS
     Route: 042
     Dates: start: 20140604, end: 20140605
  6. BUPHENYL [Suspect]
     Active Substance: SODIUM PHENYLBUTYRATE
     Indication: MITOCHONDRIAL CYTOPATHY
     Route: 048
     Dates: start: 20140530, end: 20140602
  7. NEOLAMIN MULTI V [Concomitant]
     Active Substance: HYDROXOCOBALAMIN\PYRIDOXINE HYDROCHLORIDE\THIAMINE HYDROCHLORIDE
     Indication: PROPHYLAXIS
     Route: 042
     Dates: start: 20140604, end: 20140605

REACTIONS (3)
  - Off label use [Unknown]
  - Death [Fatal]
  - Multi-organ failure [Fatal]

NARRATIVE: CASE EVENT DATE: 20140602
